FAERS Safety Report 17883460 (Version 1)
Quarter: 2020Q2

REPORT INFORMATION
  Report Type: Spontaneous
  Country: FR (occurrence: FR)
  Receive Date: 20200611
  Receipt Date: 20200611
  Transmission Date: 20200714
  Serious: Yes (Hospitalization, Other)
  Sender: FDA-Public Use
  Company Number: FR-TEVA-2020-FR-1245988

PATIENT
  Age: 29 Year
  Sex: Male

DRUGS (2)
  1. PARACETAMOL [Concomitant]
     Active Substance: ACETAMINOPHEN
     Dosage: 4 TO 5 G / DAY
     Dates: start: 2015
  2. TRAMADOL BASE [Suspect]
     Active Substance: TRAMADOL
     Dosage: 350 TO 400 MG / DAY
     Route: 048
     Dates: start: 2015

REACTIONS (2)
  - Drug dependence [Not Recovered/Not Resolved]
  - Housebound [Recovered/Resolved]

NARRATIVE: CASE EVENT DATE: 2015
